FAERS Safety Report 5512879-0 (Version None)
Quarter: 2007Q4

REPORT INFORMATION
  Report Type: 
  Country: None (occurrence: None)
  Receive Date: 20071112
  Receipt Date: 20071102
  Transmission Date: 20080405
  Serious: Yes (Hospitalization)
  Sender: FDA-Public Use
  Company Number: A0673896A

PATIENT
  Age: 67 Year
  Sex: Male
  Weight: 53.7 kg

DRUGS (13)
  1. AVANDIA [Suspect]
     Indication: DRUG USE FOR UNKNOWN INDICATION
     Dosage: 4MG PER DAY
     Route: 048
     Dates: start: 20030328
  2. INSULIN [Concomitant]
  3. TENORMIN [Concomitant]
  4. PLAVIX [Concomitant]
  5. ECOTRIN [Concomitant]
  6. ASPIRIN [Concomitant]
  7. NIASPAN [Concomitant]
     Dosage: 1000MG PER DAY
  8. ATENOLOL [Concomitant]
  9. LISINOPRIL [Concomitant]
  10. SYNTHROID [Concomitant]
  11. IRON [Concomitant]
  12. MULTI-VITAMIN [Concomitant]
  13. METOLAZONE [Concomitant]

REACTIONS (11)
  - CARDIAC FAILURE CONGESTIVE [None]
  - CHEST DISCOMFORT [None]
  - DYSPNOEA [None]
  - DYSPNOEA EXERTIONAL [None]
  - FATIGUE [None]
  - GALLOP RHYTHM PRESENT [None]
  - JUGULAR VEIN DISTENSION [None]
  - OEDEMA PERIPHERAL [None]
  - ORTHOPNOEA [None]
  - PULMONARY OEDEMA [None]
  - WEIGHT INCREASED [None]
